FAERS Safety Report 15762810 (Version 2)
Quarter: 2018Q4

REPORT INFORMATION
  Report Type: Report from Study
  Country: US (occurrence: US)
  Receive Date: 20181226
  Receipt Date: 20181228
  Transmission Date: 20190205
  Serious: Yes (Other)
  Sender: FDA-Public Use
  Company Number: US-PFIZER INC-2018523300

PATIENT
  Age: 13 Month
  Sex: Female

DRUGS (4)
  1. NITROUS OXIDE. [Suspect]
     Active Substance: NITROUS OXIDE
     Indication: ANAESTHESIA
     Dosage: UNK (RECEIVED 47 MIN OF NITROUS OXIDE, WITH 65.6% MAX ET N2O)
     Route: 055
  2. CARBOPLATIN. [Suspect]
     Active Substance: CARBOPLATIN
     Indication: RETINOBLASTOMA
     Dosage: UNK, CYCLIC (AFTER HER THIRD CYCLE OF CARBOPLATIN OAC)
  3. HEPARIN [Concomitant]
     Active Substance: HEPARIN SODIUM
     Indication: PROPHYLAXIS
     Dosage: UNK
  4. SEVOFLURANE. [Concomitant]
     Active Substance: SEVOFLURANE

REACTIONS (1)
  - Choroidal infarction [Unknown]
